FAERS Safety Report 5744075-6 (Version None)
Quarter: 2008Q2

REPORT INFORMATION
  Report Type: 
  Country: None (occurrence: None)
  Receive Date: 20080520
  Receipt Date: 20080506
  Transmission Date: 20081010
  Serious: Yes (Hospitalization, Other)
  Sender: FDA-Public Use
  Company Number: US-BAYER-US-2007-023052

PATIENT
  Age: 38 Year
  Sex: Male

DRUGS (2)
  1. BETASERON [Suspect]
     Indication: RELAPSING-REMITTING MULTIPLE SCLEROSIS
     Dosage: TOTAL DAILY DOSE: 8 MIU
     Route: 058
     Dates: start: 20070217, end: 20070609
  2. BETASERON [Suspect]
     Dosage: TOTAL DAILY DOSE: 8 MIU
     Route: 058
     Dates: start: 20070711, end: 20080411

REACTIONS (8)
  - BLISTER [None]
  - CHILLS [None]
  - GANGRENE [None]
  - INJECTION SITE INDURATION [None]
  - INJECTION SITE INFECTION [None]
  - INJECTION SITE NECROSIS [None]
  - INJECTION SITE ULCER [None]
  - WEIGHT INCREASED [None]
